FAERS Safety Report 21914310 (Version 1)
Quarter: 2023Q1

REPORT INFORMATION
  Report Type: Spontaneous
  Country: US (occurrence: US)
  Receive Date: 20230126
  Receipt Date: 20230126
  Transmission Date: 20230418
  Serious: Yes (Other)
  Sender: FDA-Public Use
  Company Number: US-drreddys-LIT/USA/23/0160270

PATIENT
  Age: 37 Year
  Sex: Female

DRUGS (16)
  1. GLYCOPYRROLATE [Suspect]
     Active Substance: GLYCOPYRROLATE
     Indication: Benign familial pemphigus
  2. TACROLIMUS [Suspect]
     Active Substance: TACROLIMUS
     Indication: Benign familial pemphigus
  3. FLUCONAZOLE [Suspect]
     Active Substance: FLUCONAZOLE
     Indication: Benign familial pemphigus
  4. CLOBETASOL [Suspect]
     Active Substance: CLOBETASOL
     Indication: Benign familial pemphigus
  5. PREDNISONE [Suspect]
     Active Substance: PREDNISONE
     Indication: Benign familial pemphigus
  6. MUPIROCIN [Suspect]
     Active Substance: MUPIROCIN
     Indication: Benign familial pemphigus
  7. CEPHALEXIN [Suspect]
     Active Substance: CEPHALEXIN
     Indication: Benign familial pemphigus
  8. VITAMIN D NOS [Suspect]
     Active Substance: VITAMIN D NOS
     Indication: Benign familial pemphigus
     Route: 048
  9. MAGNESIUM CHLORIDE [Suspect]
     Active Substance: MAGNESIUM CHLORIDE
     Indication: Benign familial pemphigus
  10. FLUOROURACIL [Suspect]
     Active Substance: FLUOROURACIL
     Indication: Benign familial pemphigus
     Route: 061
  11. FLUOCINONIDE [Suspect]
     Active Substance: FLUOCINONIDE
     Indication: Benign familial pemphigus
  12. DOXYCYCLINE [Suspect]
     Active Substance: DOXYCYCLINE
     Indication: Benign familial pemphigus
  13. MINOCYCLINE HYDROCHLORIDE [Concomitant]
     Active Substance: MINOCYCLINE HYDROCHLORIDE
     Indication: Product used for unknown indication
  14. ZINC OXIDE [Concomitant]
     Active Substance: ZINC OXIDE
     Indication: Product used for unknown indication
  15. CALCIPOTRIENE [Concomitant]
     Active Substance: CALCIPOTRIENE
     Indication: Product used for unknown indication
  16. TRIAMCINOLONE [Concomitant]
     Active Substance: TRIAMCINOLONE
     Indication: Product used for unknown indication

REACTIONS (5)
  - Benign familial pemphigus [Unknown]
  - Disease recurrence [Unknown]
  - Disease progression [Unknown]
  - Colitis ulcerative [Unknown]
  - Drug ineffective for unapproved indication [Unknown]
